FAERS Safety Report 8957525 (Version 1)
Quarter: 2012Q4

REPORT INFORMATION
  Report Type: 
  Country: DE (occurrence: DE)
  Receive Date: 20121211
  Receipt Date: 20121211
  Transmission Date: 20130627
  Serious: Yes (Hospitalization, Other)
  Sender: FDA-Public Use
  Company Number: DE-B.I. PHARMACEUTICALS,INC./RIDGEFIELD-2012-DE-02995DE

PATIENT
  Age: 0 Year
  Sex: Female
  Weight: 3.2 kg

DRUGS (2)
  1. CLONIDINE [Suspect]
     Indication: SUICIDE ATTEMPT
     Dosage: 1500 mg
     Dates: start: 20120606, end: 20120607
  2. OMEPRAZOL [Concomitant]
     Indication: SUICIDE ATTEMPT
     Dosage: 300 mg
     Dates: start: 20120606, end: 20120607

REACTIONS (1)
  - Arrhythmia neonatal [Recovered/Resolved]
